FAERS Safety Report 9019386 (Version 1)
Quarter: 2013Q1

REPORT INFORMATION
  Report Type: Spontaneous
  Country: FI (occurrence: FI)
  Receive Date: 20130118
  Receipt Date: 20130118
  Transmission Date: 20140127
  Serious: Yes (Other)
  Sender: FDA-Public Use
  Company Number: FI-ELI_LILLY_AND_COMPANY-FI201210005098

PATIENT
  Age: 86 None
  Sex: Female

DRUGS (6)
  1. FORSTEO [Suspect]
     Indication: OSTEOPOROSIS
     Dosage: 20 UG, QD
     Route: 058
     Dates: start: 20111101, end: 201211
  2. CAD [Concomitant]
  3. ESTROGEN NOS [Concomitant]
  4. CARTILAGE [Concomitant]
  5. PANACOD [Concomitant]
     Indication: PAIN
  6. IRON [Concomitant]

REACTIONS (5)
  - Lung neoplasm malignant [Unknown]
  - Oedema peripheral [Not Recovered/Not Resolved]
  - Intentional drug misuse [Recovered/Resolved]
  - Malaise [Unknown]
  - Blood pressure fluctuation [Unknown]
